FAERS Safety Report 6275837-7 (Version None)
Quarter: 2009Q3

REPORT INFORMATION
  Report Type: 
  Country: None (occurrence: None)
  Receive Date: 20090717
  Receipt Date: 20090709
  Transmission Date: 20100115
  Serious: Yes (Hospitalization, Disabling, Other)
  Sender: FDA-Public Use
  Company Number: ADR7092009

PATIENT
  Age: 65 Year
  Sex: Male

DRUGS (4)
  1. SIMVASTATIN [Suspect]
     Indication: HYPERCHOLESTEROLAEMIA
     Dosage: 40 MG/DAY ORAL
     Route: 048
     Dates: start: 20071010, end: 20080101
  2. MAREVAN (WARFARIN-VARIABLE DOSE DEPENDING ON INR, ORAL) [Concomitant]
  3. SOTALOL [Concomitant]
  4. DIGITOXIN [Concomitant]

REACTIONS (2)
  - JOINT SWELLING [None]
  - POLYMYOSITIS [None]
